FAERS Safety Report 10339541 (Version 2)
Quarter: 2014Q3

REPORT INFORMATION
  Report Type: Spontaneous
  Country: FR (occurrence: FR)
  Receive Date: 20140724
  Receipt Date: 20140807
  Transmission Date: 20150326
  Serious: Yes (Hospitalization)
  Sender: FDA-Public Use
  Company Number: FR-PFIZER INC-2014200836

PATIENT
  Age: 31 Year
  Sex: Male
  Weight: 220 kg

DRUGS (11)
  1. GENTAMICIN [Concomitant]
     Active Substance: GENTAMICIN
     Dosage: ACCORDING TO TROUGH LEVEL
     Dates: start: 20140509
  2. NOREPINEPHRINE [Concomitant]
     Active Substance: NOREPINEPHRINE\NOREPINEPHRINE BITARTRATE
     Indication: SHOCK
     Dosage: UP TO 5 MG PER HOUR
     Dates: start: 20140509, end: 20140510
  3. GENTAMICIN [Concomitant]
     Active Substance: GENTAMICIN
     Dosage: 1 DF, SINGLE
     Dates: start: 20140508, end: 20140508
  4. CLINDAMYCIN [Suspect]
     Active Substance: CLINDAMYCIN\CLINDAMYCIN PHOSPHATE
     Dosage: 900 MG
     Route: 041
     Dates: start: 20140508, end: 20140508
  5. TAZOCILLINE [Concomitant]
     Active Substance: PIPERACILLIN SODIUM\TAZOBACTAM SODIUM
     Indication: NECROTISING FASCIITIS
     Dosage: 16 G, DAILY, THEN 4G BEFORE ELECTRIC SYRINGE PUMP
     Route: 042
     Dates: start: 20140508, end: 20140508
  6. TAZOCILLINE [Concomitant]
     Active Substance: PIPERACILLIN SODIUM\TAZOBACTAM SODIUM
     Dosage: 20 G, DAILY
     Route: 042
     Dates: start: 20140509
  7. TRIFLUCAN [Concomitant]
     Active Substance: FLUCONAZOLE
     Indication: NECROTISING FASCIITIS
     Dosage: UNK
     Dates: start: 20140508
  8. CLINDAMYCIN [Suspect]
     Active Substance: CLINDAMYCIN\CLINDAMYCIN PHOSPHATE
     Dosage: 900 MG, 3X/DAY
     Route: 041
     Dates: start: 20140509
  9. FLAGYL [Suspect]
     Active Substance: METRONIDAZOLE\METRONIDAZOLE HYDROCHLORIDE
     Dosage: 1000 MG, DAILY
     Route: 041
     Dates: start: 20140508, end: 20140508
  10. FLAGYL [Suspect]
     Active Substance: METRONIDAZOLE\METRONIDAZOLE HYDROCHLORIDE
     Dosage: 500 MG, 4X/DAY
     Route: 041
     Dates: start: 20140509, end: 20140513
  11. AMIKLIN [Concomitant]
     Active Substance: AMIKACIN SULFATE
     Indication: NECROTISING FASCIITIS
     Dosage: 1500 MG, SINGLE
     Dates: start: 20140508, end: 20140508

REACTIONS (1)
  - Neuropathy peripheral [Recovering/Resolving]

NARRATIVE: CASE EVENT DATE: 20140510
